FAERS Safety Report 7443770-0 (Version None)
Quarter: 2011Q2

REPORT INFORMATION
  Report Type: 
  Country: None (occurrence: None)
  Receive Date: 20110428
  Receipt Date: 20110427
  Transmission Date: 20111010
  Serious: Yes (Other)
  Sender: FDA-Public Use
  Company Number: GB-ABBOTT-11P-167-0707053-00

PATIENT
  Sex: Female

DRUGS (2)
  1. HUMIRA [Suspect]
     Route: 058
  2. HUMIRA [Suspect]
     Indication: CROHN'S DISEASE
     Dates: start: 20080601

REACTIONS (14)
  - DRY EYE [None]
  - MUCOSA VESICLE [None]
  - ANAEMIA [None]
  - INFECTED SKIN ULCER [None]
  - HERPES ZOSTER [None]
  - EYELIDS PRURITUS [None]
  - EYE PAIN [None]
  - ULCERATIVE KERATITIS [None]
  - VISION BLURRED [None]
  - LIP DRY [None]
  - DRUG DOSE OMISSION [None]
  - SKIN EXFOLIATION [None]
  - CHAPPED LIPS [None]
  - WRONG TECHNIQUE IN DRUG USAGE PROCESS [None]
